FAERS Safety Report 8496205-3 (Version None)
Quarter: 2012Q3

REPORT INFORMATION
  Report Type: 
  Country: None (occurrence: None)
  Receive Date: 20120709
  Receipt Date: 20120629
  Transmission Date: 20120928
  Serious: Yes (Hospitalization)
  Sender: FDA-Public Use
  Company Number: FR-JNJFOC-20120607497

PATIENT
  Sex: Female

DRUGS (3)
  1. ACETAMINOPHEN [Suspect]
     Indication: HEADACHE
     Route: 048
  2. ACETAMINOPHEN AND TRAMADOL HCL [Suspect]
     Indication: PAIN
     Dosage: 325 MG+37.5 MG
     Route: 048
     Dates: start: 20120315, end: 20120522
  3. ACETAMINOPHEN AND TRAMADOL HCL [Suspect]
     Indication: HEADACHE
     Dosage: 325 MG+37.5 MG
     Route: 048
     Dates: start: 20120315, end: 20120522

REACTIONS (1)
  - RENAL FAILURE ACUTE [None]
